FAERS Safety Report 10009624 (Version 2)
Quarter: 2014Q1

REPORT INFORMATION
  Report Type: Spontaneous
  Country: US (occurrence: US)
  Receive Date: 20140312
  Receipt Date: 20140312
  Transmission Date: 20141002
  Serious: No
  Sender: FDA-Public Use
  Company Number: US-INCYTE CORPORATION-2012IN001796

PATIENT
  Age: 74 Year
  Sex: Male
  Weight: 97.05 kg

DRUGS (2)
  1. JAKAFI [Suspect]
     Dosage: 15 MG, QD
     Route: 048
     Dates: start: 20120209
  2. HYDROXYUREA [Concomitant]

REACTIONS (1)
  - Dyspnoea [Unknown]
